FAERS Safety Report 9233898 (Version 1)
Quarter: 2013Q2

REPORT INFORMATION
  Report Type: Spontaneous
  Country: US (occurrence: US)
  Receive Date: 20130416
  Receipt Date: 20130416
  Transmission Date: 20140414
  Serious: No
  Sender: FDA-Public Use
  Company Number: US-MYLANLABS-2013S1005181

PATIENT
  Age: 63 Year
  Sex: Female

DRUGS (2)
  1. METHIMAZOLE TABLETS USP [Suspect]
     Indication: HYPERTHYROIDISM
     Route: 048
     Dates: start: 20130205, end: 20130225
  2. LOSARTAN [Concomitant]
     Indication: HYPERTENSION
     Route: 048
     Dates: start: 2008

REACTIONS (2)
  - Palpitations [Recovered/Resolved]
  - Heart rate irregular [Recovered/Resolved]
